FAERS Safety Report 26048598 (Version 1)
Quarter: 2025Q4

REPORT INFORMATION
  Report Type: Report from Study
  Country: CA (occurrence: CA)
  Receive Date: 20251114
  Receipt Date: 20251114
  Transmission Date: 20260118
  Serious: Yes (Hospitalization)
  Sender: ABBVIE
  Company Number: CA-ABBVIE-6544773

PATIENT
  Age: 61 Year
  Sex: Female

DRUGS (1)
  1. RINVOQ [Suspect]
     Active Substance: UPADACITINIB
     Indication: Rheumatoid arthritis
     Route: 048
     Dates: start: 20210503, end: 2025

REACTIONS (8)
  - Localised infection [Unknown]
  - Osteoarthritis [Unknown]
  - Acne [Unknown]
  - Cardiac dysfunction [Unknown]
  - Lung disorder [Unknown]
  - Pneumonia [Unknown]
  - Arthralgia [Unknown]
  - Bacterial infection [Unknown]

NARRATIVE: CASE EVENT DATE: 20220101
